FAERS Safety Report 9518922 (Version 1)
Quarter: 2013Q3

REPORT INFORMATION
  Report Type: Spontaneous
  Country: US (occurrence: None)
  Receive Date: 20130910
  Receipt Date: 20130910
  Transmission Date: 20140515
  Serious: Yes (Hospitalization)
  Sender: FDA-Public Use
  Company Number: None

PATIENT
  Age: 65 Year
  Sex: Female
  Weight: 81.8 kg

DRUGS (4)
  1. RISPERIDONE [Suspect]
     Indication: BIPOLAR DISORDER
     Route: 048
     Dates: start: 20130615, end: 20130808
  2. LITHIUM [Concomitant]
  3. DEPAKOTE [Concomitant]
  4. LORAZEPAM [Concomitant]

REACTIONS (3)
  - Delirium [None]
  - Fatigue [None]
  - Pulmonary embolism [None]
